FAERS Safety Report 10164431 (Version 2)
Quarter: 2014Q2

REPORT INFORMATION
  Report Type: Spontaneous
  Country: US (occurrence: US)
  Receive Date: 20140510
  Receipt Date: 20140510
  Transmission Date: 20141212
  Serious: Yes (Hospitalization, Other)
  Sender: FDA-Public Use
  Company Number: US200903003101

PATIENT
  Age: 52 Year
  Sex: Female
  Weight: 138.78 kg

DRUGS (23)
  1. BYETTA PEN DISPOSABLE [Suspect]
     Dates: start: 200504, end: 200706
  2. EXENATIDE UNK STRENGTH PEN, DISPOSABLE DEVICE [Concomitant]
  3. RANITIDINE [Concomitant]
  4. ACTOS [Concomitant]
  5. LANTUS [Concomitant]
  6. CALCIUM [Concomitant]
  7. TRIAMTERENE + HCTZ [Concomitant]
  8. CLINDAMYCIN [Concomitant]
  9. FLUOXETINE [Concomitant]
  10. IRON [Concomitant]
  11. ANTIFUNGALS [Concomitant]
  12. TYLENOL [Concomitant]
  13. MAVIK [Concomitant]
  14. METFORMIN [Concomitant]
  15. AMITRIPTYLINE [Concomitant]
  16. LEVOTHYROXINE [Concomitant]
  17. LISINOPRIL [Concomitant]
  18. PRILOSEC [Concomitant]
  19. ATENOLOL [Concomitant]
  20. ACETAMINOPHEN + HYDROCODONE [Concomitant]
  21. POTASSIUM CHLORIDE [Concomitant]
  22. VANCOMYCIN [Concomitant]
     Indication: SEPSIS
  23. GENTAMICIN [Concomitant]

REACTIONS (11)
  - Myocardial infarction [Unknown]
  - Renal failure acute [Unknown]
  - Pancreatic injury [Unknown]
  - Dizziness [Unknown]
  - Hypopnoea [Unknown]
  - Hypotension [Unknown]
  - Hypoaesthesia [Unknown]
  - Muscle twitching [Unknown]
  - Incontinence [Unknown]
  - Off label use [Unknown]
  - Gallbladder disorder [Unknown]
